FAERS Safety Report 18982847 (Version 1)
Quarter: 2021Q1

REPORT INFORMATION
  Report Type: Report from Study
  Country: GB (occurrence: GB)
  Receive Date: 20210308
  Receipt Date: 20210308
  Transmission Date: 20210420
  Serious: Yes (Hospitalization, Other)
  Sender: FDA-Public Use
  Company Number: NVSC2021GB048989

PATIENT
  Sex: Male

DRUGS (1)
  1. COSENTYX [Suspect]
     Active Substance: SECUKINUMAB
     Indication: ANKYLOSING SPONDYLITIS
     Dosage: 300 MG, QMO
     Route: 058
     Dates: start: 2018

REACTIONS (7)
  - Fluid retention [Unknown]
  - Hypokinesia [Unknown]
  - Dyspnoea [Unknown]
  - Pain [Unknown]
  - Cardiac failure [Unknown]
  - Weight decreased [Unknown]
  - Feeling abnormal [Unknown]
